FAERS Safety Report 7222739-5 (Version None)
Quarter: 2011Q1

REPORT INFORMATION
  Report Type: 
  Country: None (occurrence: None)
  Receive Date: 20110106
  Receipt Date: 20110106
  Transmission Date: 20110831
  Serious: No
  Sender: FDA-Public Use
  Company Number: None

PATIENT
  Age: 69 Year
  Sex: Female
  Weight: 98.8842 kg

DRUGS (1)
  1. LEVAQUIN [Suspect]
     Indication: INFECTION
     Dosage: 500 MG ONCE DAILY
     Dates: start: 20101207, end: 20101214

REACTIONS (8)
  - BLOOD POTASSIUM DECREASED [None]
  - BLOOD PRESSURE DECREASED [None]
  - COUGH [None]
  - BLOOD GLUCOSE DECREASED [None]
  - DYSPHONIA [None]
  - DIZZINESS [None]
  - DIARRHOEA [None]
  - MUSCLE SPASMS [None]
